FAERS Safety Report 6413448-0 (Version None)
Quarter: 2009Q4

REPORT INFORMATION
  Report Type: 
  Country: None (occurrence: None)
  Receive Date: 20091026
  Receipt Date: 20091023
  Transmission Date: 20100525
  Serious: Yes (Hospitalization)
  Sender: FDA-Public Use
  Company Number: US-PFIZER INC-2009267273

PATIENT
  Sex: Male
  Weight: 100 kg

DRUGS (10)
  1. SELZENTRY [Suspect]
     Indication: HIV INFECTION
     Dosage: 600 MG, 2X/DAY
     Dates: start: 20090701, end: 20090801
  2. TRUVADA [Concomitant]
  3. APTIVUS [Concomitant]
  4. ANDROGEL [Concomitant]
  5. PROSCAR [Concomitant]
  6. ADVAIR DISKUS 100/50 [Concomitant]
  7. NORVIR [Concomitant]
  8. ISENTRESS [Concomitant]
  9. BACTRIM [Concomitant]
  10. CELEBREX [Concomitant]

REACTIONS (4)
  - HEPATITIS [None]
  - PYREXIA [None]
  - RENAL FAILURE ACUTE [None]
  - RESPIRATORY FAILURE [None]
